FAERS Safety Report 8773620 (Version 2)
Quarter: 2012Q4

REPORT INFORMATION
  Report Type: 
  Country: CH (occurrence: CH)
  Receive Date: 20120907
  Receipt Date: 20120918
  Transmission Date: 20130627
  Serious: Yes (Hospitalization, Other)
  Sender: FDA-Public Use
  Company Number: PHHY2012CH076256

PATIENT
  Age: 78 Year
  Sex: Male

DRUGS (3)
  1. OCTREOTIDE [Suspect]
     Dosage: 10 mg, every six weeks
  2. CO-TRIMOXAZOLE [Suspect]
     Indication: URINARY TRACT INFECTION
  3. CIPROFLOXACIN [Suspect]
     Indication: URINARY TRACT INFECTION

REACTIONS (10)
  - Nephropathy [Recovered/Resolved]
  - Tubulointerstitial nephritis [Recovered/Resolved]
  - Hyperoxaluria [Recovered/Resolved]
  - Kidney fibrosis [Recovered/Resolved]
  - Oliguria [Recovered/Resolved]
  - Urinary tract infection [Recovered/Resolved]
  - Renal failure acute [Unknown]
  - Nephritis allergic [Unknown]
  - Weight decreased [Unknown]
  - Anaemia [Unknown]
